FAERS Safety Report 17556158 (Version 1)
Quarter: 2020Q1

REPORT INFORMATION
  Report Type: Spontaneous
  Country: US (occurrence: US)
  Receive Date: 20200318
  Receipt Date: 20200318
  Transmission Date: 20200409
  Serious: No
  Sender: FDA-Public Use
  Company Number: US-THERAPEUTICSMD-2020TMD00363

PATIENT
  Age: 49 Year
  Sex: Female
  Weight: 45.35 kg

DRUGS (7)
  1. IMVEXXY [Suspect]
     Active Substance: ESTRADIOL
     Indication: MENOPAUSE
  2. IMVEXXY [Suspect]
     Active Substance: ESTRADIOL
     Indication: DISCOMFORT
  3. IMVEXXY [Suspect]
     Active Substance: ESTRADIOL
     Indication: ATROPHIC VULVOVAGINITIS
     Dosage: ^STARTER DOSE^ IN THE MORNING
     Dates: start: 20200116
  4. UNSPECIFIED SUPPLEMENTS [Concomitant]
  5. PROGESTERONE. [Concomitant]
     Active Substance: PROGESTERONE
  6. UNSPECIFIED VITAMINS [Concomitant]
     Active Substance: VITAMINS
  7. UNSPECIFIED PAIN MEDICATION [Concomitant]
     Active Substance: UNSPECIFIED INGREDIENT

REACTIONS (4)
  - Abdominal pain lower [Recovered/Resolved]
  - Intentional product misuse [Not Recovered/Not Resolved]
  - Nausea [Recovered/Resolved]
  - Abdominal distension [Recovered/Resolved]

NARRATIVE: CASE EVENT DATE: 202001
